FAERS Safety Report 22597178 (Version 1)
Quarter: 2023Q2

REPORT INFORMATION
  Report Type: Spontaneous
  Country: IN (occurrence: None)
  Receive Date: 20230614
  Receipt Date: 20230614
  Transmission Date: 20230722
  Serious: Yes (Death)
  Sender: FDA-Public Use
  Company Number: IN-ROCHE-3256769

PATIENT
  Sex: Male

DRUGS (1)
  1. TECENTRIQ [Suspect]
     Active Substance: ATEZOLIZUMAB
     Indication: Hormone-refractory prostate cancer
     Route: 041
     Dates: start: 20221229

REACTIONS (4)
  - Off label use [Unknown]
  - Diarrhoea [Fatal]
  - Fatigue [Fatal]
  - Haematuria [Fatal]
